FAERS Safety Report 8522065-8 (Version None)
Quarter: 2012Q3

REPORT INFORMATION
  Report Type: 
  Country: None (occurrence: None)
  Receive Date: 20120719
  Receipt Date: 20120709
  Transmission Date: 20120928
  Serious: Yes (Other)
  Sender: FDA-Public Use
  Company Number: JP-VERTEX PHARMACEUTICALS INC.-AE-2012-010173

PATIENT
  Age: 61 Year
  Sex: Female

DRUGS (9)
  1. TELAVIC (TELAPREVIR) [Suspect]
     Indication: HEPATITIS C
     Route: 048
     Dates: start: 20120111, end: 20120208
  2. PEGINTERFERON ALFA-2B [Concomitant]
     Indication: HEPATITIS C
     Route: 058
     Dates: start: 20120111, end: 20120613
  3. REBETOL [Concomitant]
     Indication: HEPATITIS C
     Route: 048
     Dates: start: 20120111, end: 20120111
  4. REBETOL [Concomitant]
     Route: 048
     Dates: start: 20120308, end: 20120403
  5. RESTAMIN [Concomitant]
     Route: 061
     Dates: start: 20120222, end: 20120403
  6. REBETOL [Concomitant]
     Route: 048
     Dates: start: 20120404, end: 20120613
  7. PRIMPERAN TAB [Concomitant]
     Route: 048
     Dates: start: 20120117, end: 20120223
  8. REBETOL [Concomitant]
     Route: 048
     Dates: start: 20120112, end: 20120211
  9. REBETOL [Concomitant]
     Route: 048
     Dates: start: 20120212, end: 20120307

REACTIONS (3)
  - MALAISE [None]
  - SYNCOPE [None]
  - HAEMOGLOBIN DECREASED [None]
